FAERS Safety Report 9898901 (Version 2)
Quarter: 2014Q1

REPORT INFORMATION
  Report Type: Spontaneous
  Country: US (occurrence: US)
  Receive Date: 20140214
  Receipt Date: 20140214
  Transmission Date: 20141002
  Serious: Yes (Hospitalization)
  Sender: FDA-Public Use
  Company Number: US-GLAXOSMITHKLINE-A0833480A

PATIENT
  Sex: Female

DRUGS (1)
  1. AVANDIA [Suspect]
     Indication: DIABETES MELLITUS
     Route: 048
     Dates: start: 2003, end: 2008

REACTIONS (5)
  - Cardiac disorder [Unknown]
  - Cardiovascular disorder [Unknown]
  - Injury [Unknown]
  - Cardiac disorder [Unknown]
  - Thrombosis [Unknown]
